FAERS Safety Report 6390063-9 (Version None)
Quarter: 2009Q4

REPORT INFORMATION
  Report Type: 
  Country: None (occurrence: None)
  Receive Date: 20091001
  Receipt Date: 20090916
  Transmission Date: 20100525
  Serious: Yes (Hospitalization)
  Sender: FDA-Public Use
  Company Number: 2009-3911

PATIENT
  Sex: Male

DRUGS (2)
  1. APOKYN [Suspect]
     Indication: PARKINSON'S DISEASE
     Dosage: 0.4 ML
  2. MIRAPEXIN (APOKYN) (PRAMIPEXOLE) (APOMORPHINE HYDROCHLORIDE) [Concomitant]

REACTIONS (6)
  - ABDOMINAL DISTENSION [None]
  - DEPRESSION [None]
  - MALAISE [None]
  - MOVEMENT DISORDER [None]
  - OEDEMA PERIPHERAL [None]
  - PAIN [None]
